FAERS Safety Report 9432257 (Version 2)
Quarter: 2013Q4

REPORT INFORMATION
  Report Type: Spontaneous
  Country: AU (occurrence: AU)
  Receive Date: 20130731
  Receipt Date: 20131015
  Transmission Date: 20140711
  Serious: Yes (Other)
  Sender: FDA-Public Use
  Company Number: PHHY2013AU080387

PATIENT
  Sex: Male

DRUGS (2)
  1. GLIVEC [Suspect]
     Indication: GRAFT VERSUS HOST DISEASE
     Dosage: 400 MG, DAILY
     Route: 048
  2. GLIVEC [Suspect]
     Indication: OFF LABEL USE

REACTIONS (4)
  - Dry eye [Unknown]
  - Mobility decreased [Unknown]
  - Gait disturbance [Unknown]
  - Blindness [Unknown]
